FAERS Safety Report 6005846-4 (Version None)
Quarter: 2008Q4

REPORT INFORMATION
  Report Type: 
  Country: None (occurrence: None)
  Receive Date: 20081217
  Receipt Date: 20081205
  Transmission Date: 20090506
  Serious: Yes (Other)
  Sender: FDA-Public Use
  Company Number: US-BAYER-200840187NA

PATIENT
  Sex: Female

DRUGS (2)
  1. CIPRO [Suspect]
     Indication: DRUG USE FOR UNKNOWN INDICATION
     Dates: start: 20070801
  2. CIPRO [Suspect]
     Dates: start: 20070901

REACTIONS (3)
  - ADVERSE EVENT [None]
  - INJURY [None]
  - TENDON DISORDER [None]
